FAERS Safety Report 21350120 (Version 1)
Quarter: 2022Q3

REPORT INFORMATION
  Report Type: Spontaneous
  Country: US (occurrence: None)
  Receive Date: 20220917
  Receipt Date: 20220917
  Transmission Date: 20221027
  Serious: Yes (Disabling)
  Sender: FDA-Public Use
  Company Number: None

PATIENT
  Age: 54 Year
  Sex: Female
  Weight: 69.75 kg

DRUGS (12)
  1. MORPHINE SULFATE [Suspect]
     Active Substance: MORPHINE SULFATE
     Indication: Back pain
     Dosage: OTHER QUANTITY : 84 TABLET(S);?FREQUENCY : 3 TIMES A DAY;?
     Route: 048
  2. TRAMADOL [Concomitant]
     Active Substance: TRAMADOL
  3. gabapantin [Concomitant]
  4. skellaxin [Concomitant]
  5. MORPHINE [Concomitant]
     Active Substance: MORPHINE
  6. LEVOXYL [Concomitant]
     Active Substance: LEVOTHYROXINE SODIUM
  7. ClaratinD24hr [Concomitant]
  8. IMITREX [Concomitant]
     Active Substance: SUMATRIPTAN SUCCINATE
  9. IBUPROFEN [Concomitant]
     Active Substance: IBUPROFEN
  10. TYLENOL [Concomitant]
     Active Substance: ACETAMINOPHEN
  11. SENNA [Concomitant]
     Active Substance: SENNA LEAF\SENNOSIDES\SENNOSIDES A AND B
  12. ducosate sodium [Concomitant]

REACTIONS (10)
  - Back pain [None]
  - Condition aggravated [None]
  - Therapeutic product effect decreased [None]
  - Constipation [None]
  - Product substitution issue [None]
  - Diarrhoea [None]
  - Product formulation issue [None]
  - Product complaint [None]
  - Product label issue [None]
  - Product measured potency issue [None]

NARRATIVE: CASE EVENT DATE: 20200709
